FAERS Safety Report 20981462 (Version 11)
Quarter: 2022Q4

REPORT INFORMATION
  Report Type: Spontaneous
  Country: JP (occurrence: JP)
  Receive Date: 20220620
  Receipt Date: 20221229
  Transmission Date: 20230113
  Serious: Yes (Hospitalization, Other)
  Sender: FDA-Public Use
  Company Number: JP-ASTELLAS-2022JP008625

PATIENT
  Age: 48 Year
  Sex: Male

DRUGS (8)
  1. PADCEV [Suspect]
     Active Substance: ENFORTUMAB VEDOTIN-EJFV
     Indication: Bladder cancer
     Dosage: 97.5 MG (1 MG/KG), ONCE WEEKLY
     Route: 041
     Dates: start: 20220524, end: 20220531
  2. PADCEV [Suspect]
     Active Substance: ENFORTUMAB VEDOTIN-EJFV
     Dosage: 0.75 MG/KG, EVERY OTHER WEEK
     Route: 041
     Dates: start: 20220906, end: 20221122
  3. LEVOFLOXACIN HEMIHYDRATE [Suspect]
     Active Substance: LEVOFLOXACIN
     Indication: Product used for unknown indication
     Route: 048
     Dates: start: 20220603, end: 20220607
  4. LOXOPROFEN SODIUM [Suspect]
     Active Substance: LOXOPROFEN SODIUM
     Indication: Post herpetic neuralgia
     Dosage: UNK UNK, UNKNOWN FREQ.
     Route: 048
     Dates: end: 20221122
  5. VEMLIDY [Concomitant]
     Active Substance: TENOFOVIR ALAFENAMIDE FUMARATE
     Indication: Chronic hepatitis B
     Route: 048
     Dates: start: 20201015
  6. SODIUM CHLORIDE [Concomitant]
     Active Substance: SODIUM CHLORIDE
     Indication: Bladder cancer
     Route: 042
     Dates: start: 20220524, end: 20220524
  7. DEXAMETHASONE SODIUM PHOSPHATE [Concomitant]
     Active Substance: DEXAMETHASONE SODIUM PHOSPHATE
     Indication: Bladder cancer
     Route: 042
     Dates: start: 20220524, end: 20220524
  8. Distilled water [Concomitant]
     Indication: Bladder cancer
     Route: 042
     Dates: start: 20220524, end: 20220524

REACTIONS (9)
  - Drug eruption [Recovered/Resolved]
  - Femur fracture [Not Recovered/Not Resolved]
  - Myelosuppression [Recovering/Resolving]
  - Blister [Recovering/Resolving]
  - Herpes zoster [Recovering/Resolving]
  - Malignant neoplasm progression [Not Recovered/Not Resolved]
  - Duodenal ulcer haemorrhage [Recovering/Resolving]
  - Product use issue [Unknown]
  - Off label use [Unknown]

NARRATIVE: CASE EVENT DATE: 20220531
